FAERS Safety Report 15661113 (Version 1)
Quarter: 2018Q4

REPORT INFORMATION
  Report Type: Spontaneous
  Country: ZA (occurrence: ZA)
  Receive Date: 20181127
  Receipt Date: 20181127
  Transmission Date: 20190205
  Serious: Yes (Hospitalization)
  Sender: FDA-Public Use
  Company Number: ZA-PFIZER INC-2018483798

PATIENT
  Age: 72 Year
  Sex: Male

DRUGS (11)
  1. ABITREXATE [Suspect]
     Active Substance: METHOTREXATE SODIUM
     Dosage: 2.5 MG, UNK
  2. CARDICOR [Suspect]
     Active Substance: BISOPROLOL
     Dosage: 2.5 MG, UNK
  3. ASPEN WARFARIN [Suspect]
     Active Substance: WARFARIN
     Dosage: 5 MG, UNK
  4. DYNA INDAPAMIDE [Suspect]
     Active Substance: INDAPAMIDE
     Dosage: 1.5 MG, UNK
  5. SPIRACTIN (SPIRONOLACTONE) [Suspect]
     Active Substance: SPIRONOLACTONE
     Dosage: 25 MG, UNK
  6. PURICOS [Suspect]
     Active Substance: ALLOPURINOL
     Dosage: 300 MG, UNK
  7. FLEXOCAM [Suspect]
     Active Substance: MELOXICAM
     Dosage: 15 MG, UNK
  8. UNAT [TORASEMIDE] [Suspect]
     Active Substance: TORSEMIDE
     Dosage: 5 MG, UNK
  9. ASPAVOR [Suspect]
     Active Substance: ATORVASTATIN
     Dosage: 10 MG, UNK
  10. CIPLAVASC [Suspect]
     Active Substance: AMLODIPINE BESYLATE
     Dosage: 5 MG, UNK
  11. AUSTELL RAMIPRIL [Suspect]
     Active Substance: RAMIPRIL
     Dosage: 10 MG, UNK

REACTIONS (1)
  - Renal disorder [Unknown]
